FAERS Safety Report 10265083 (Version 2)
Quarter: 2014Q3

REPORT INFORMATION
  Report Type: Spontaneous
  Country: TR (occurrence: TR)
  Receive Date: 20140627
  Receipt Date: 20140702
  Transmission Date: 20150326
  Serious: Yes (Life-Threatening)
  Sender: FDA-Public Use
  Company Number: PHHY2014TR076375

PATIENT
  Age: 34 Year
  Sex: Female
  Weight: 86 kg

DRUGS (1)
  1. PACLITAXEL EBEWE [Suspect]
     Active Substance: PACLITAXEL
     Indication: BREAST CANCER
     Dosage: 6 MG/ML, UNK
     Route: 042
     Dates: start: 20140523, end: 20140523

REACTIONS (4)
  - Throat irritation [Recovered/Resolved]
  - Pain [Recovered/Resolved]
  - Oxygen saturation decreased [Recovered/Resolved]
  - Respiratory distress [Recovered/Resolved]

NARRATIVE: CASE EVENT DATE: 20140523
